FAERS Safety Report 4736852-5 (Version None)
Quarter: 2005Q3

REPORT INFORMATION
  Report Type: 
  Country: None (occurrence: None)
  Receive Date: 20050805
  Receipt Date: 20050727
  Transmission Date: 20060218
  Serious: Yes (Other)
  Sender: FDA-Public Use
  Company Number: 2005075973

PATIENT
  Age: 40 Year
  Sex: Female
  Weight: 44.4525 kg

DRUGS (10)
  1. ZOLOFT [Suspect]
     Indication: DEPRESSION
     Dosage: 50 (50 MG, 1 IN 1 D) ORAL
     Route: 048
     Dates: start: 19980101
  2. CELEBREX [Suspect]
     Indication: PAIN
     Dosage: 200 MG (200 MG, 1 IN 1 D) ORAL
     Route: 048
     Dates: start: 19990101
  3. LIBRAX [Concomitant]
  4. XANAX [Concomitant]
  5. NEXIUM [Concomitant]
  6. TOPROL-XL [Concomitant]
  7. PLAQUENIL [Concomitant]
  8. PREMARIN [Concomitant]
  9. HYDROCODONE [Concomitant]
  10. ALL OTHER THERAPEUTIC PRODUCTS [Concomitant]

REACTIONS (11)
  - ANAEMIA [None]
  - FIBROMYALGIA [None]
  - IMPLANT SITE PAIN [None]
  - MIGRAINE [None]
  - OSTEOARTHRITIS [None]
  - PAIN [None]
  - PROCEDURAL PAIN [None]
  - SPINAL OPERATION [None]
  - SYSTEMIC LUPUS ERYTHEMATOSUS [None]
  - WEIGHT INCREASED [None]
  - WHITE BLOOD CELL COUNT ABNORMAL [None]
